FAERS Safety Report 7098551-7 (Version None)
Quarter: 2010Q4

REPORT INFORMATION
  Report Type: 
  Country: None (occurrence: None)
  Receive Date: 20101112
  Receipt Date: 20101105
  Transmission Date: 20110411
  Serious: Yes (Hospitalization, Other)
  Sender: FDA-Public Use
  Company Number: DE-ABBOTT-10P-062-0683651-00

PATIENT
  Sex: Male
  Weight: 87 kg

DRUGS (5)
  1. HUMIRA [Suspect]
     Indication: RHEUMATOID ARTHRITIS
     Route: 058
     Dates: start: 20030728
  2. PANTOPRAZOLE SODIUM [Concomitant]
     Indication: GASTRITIS PROPHYLAXIS
     Dosage: 40 MG DAILY
     Route: 048
     Dates: start: 20100801
  3. ASPIRIN [Concomitant]
     Indication: PLATELET AGGREGATION INHIBITION
     Dosage: 100 MG DAILY
     Route: 048
     Dates: start: 20100801
  4. NITROFURANTOIN [Concomitant]
     Indication: INFECTION PROPHYLAXIS
     Dosage: 100 MG DAILY
     Route: 048
  5. CIPROFLOXACIN [Concomitant]
     Indication: INFECTION PROPHYLAXIS

REACTIONS (5)
  - BENIGN PROSTATIC HYPERPLASIA [None]
  - FIBROMATOSIS [None]
  - PROSTATIC DISORDER [None]
  - PROSTATIC HAEMORRHAGE [None]
  - PROSTATITIS [None]
